FAERS Safety Report 20526457 (Version 5)
Quarter: 2022Q3

REPORT INFORMATION
  Report Type: Report from Study
  Country: US (occurrence: US)
  Receive Date: 20220228
  Receipt Date: 20220701
  Transmission Date: 20221026
  Serious: No
  Sender: FDA-Public Use
  Company Number: US-NOVARTISTESTPH-NVSC2022US046217

PATIENT
  Sex: Female

DRUGS (1)
  1. KESIMPTA [Suspect]
     Active Substance: OFATUMUMAB
     Indication: Product used for unknown indication
     Dosage: UNK
     Route: 065

REACTIONS (7)
  - Sleep disorder [Unknown]
  - Movement disorder [Unknown]
  - Hypoaesthesia [Unknown]
  - Memory impairment [Unknown]
  - Pyrexia [Unknown]
  - Fatigue [Unknown]
  - Inappropriate schedule of product discontinuation [Unknown]
